FAERS Safety Report 5789507-2 (Version None)
Quarter: 2008Q2

REPORT INFORMATION
  Report Type: 
  Country: None (occurrence: None)
  Receive Date: 20080626
  Receipt Date: 20080204
  Transmission Date: 20081010
  Serious: No
  Sender: FDA-Public Use
  Company Number: US-ASTRAZENECA-2008UW02355

PATIENT
  Age: 70 Year
  Sex: Female

DRUGS (1)
  1. PULMICORT-100 [Suspect]
     Route: 055

REACTIONS (3)
  - DIARRHOEA [None]
  - INSOMNIA [None]
  - VAGINAL PAIN [None]
